FAERS Safety Report 19804538 (Version 6)
Quarter: 2024Q4

REPORT INFORMATION
  Report Type: Spontaneous
  Country: CA (occurrence: CA)
  Receive Date: 20210908
  Receipt Date: 20241218
  Transmission Date: 20250114
  Serious: Yes (Death, Other)
  Sender: PFIZER
  Company Number: CA-PFIZER INC-202101116624

PATIENT
  Age: 89 Year
  Sex: Male
  Weight: 90 kg

DRUGS (16)
  1. VYNDAQEL [Suspect]
     Active Substance: TAFAMIDIS MEGLUMINE
     Indication: Cardiac amyloidosis
     Dosage: 80 MG, 1X/DAY
     Route: 048
     Dates: start: 20200407
  2. CRESTOR [Concomitant]
     Active Substance: ROSUVASTATIN CALCIUM
     Dosage: 5 MG
  3. MINERALS\VITAMINS [Concomitant]
     Active Substance: MINERALS\VITAMINS
     Dosage: UNK
     Route: 048
  4. GLUCOPHAGE [Concomitant]
     Active Substance: METFORMIN HYDROCHLORIDE
     Dosage: 500 MG
  5. EDOXABAN TOSYLATE [Concomitant]
     Active Substance: EDOXABAN TOSYLATE
     Dosage: 60 MG
  6. LASIX [Concomitant]
     Active Substance: FUROSEMIDE
     Indication: Fluid imbalance
     Dosage: 20 MG
  7. LASIX [Concomitant]
     Active Substance: FUROSEMIDE
     Dosage: 40 MG, AS NEEDED (DAILY)
     Route: 048
  8. TYLENOL ARTHRITIS PAIN [Concomitant]
     Active Substance: ACETAMINOPHEN
     Indication: Arthritis
     Dosage: 650 MG, DAILY (8 HR TABLET)
  9. OMEGA-3 FATTY ACIDS [Concomitant]
     Active Substance: OMEGA-3 FATTY ACIDS
     Dosage: 1200 MG, DAILY
  10. EDOXABAN [Concomitant]
     Active Substance: EDOXABAN
     Dosage: 30 MG, DAILY
  11. AMLODIPINE [Concomitant]
     Active Substance: AMLODIPINE BESYLATE
     Dosage: 25 MG, DAILY
  12. LUMIGAN [Concomitant]
     Active Substance: BIMATOPROST
     Dosage: 1 DROP
  13. MYRBETRIQ [Concomitant]
     Active Substance: MIRABEGRON
     Dosage: 50 MG, DAILY
  14. SENNA LEAF [Concomitant]
     Active Substance: SENNA LEAF
     Indication: Bowel movement irregularity
     Dosage: 8.6 MG, DAILY
  15. SEROQUEL [Concomitant]
     Active Substance: QUETIAPINE FUMARATE
     Indication: Sleep disorder
     Dosage: 25 MG, AS NEEDED (2XDAY)
  16. FERROUS FUMARATE [Concomitant]
     Active Substance: FERROUS FUMARATE
     Dosage: 300 MG, DAILY
     Route: 048

REACTIONS (23)
  - Death [Fatal]
  - Atrial fibrillation [Not Recovered/Not Resolved]
  - Autonomic neuropathy [Unknown]
  - Aortic valve stenosis [Unknown]
  - Cardiac failure chronic [Not Recovered/Not Resolved]
  - Condition aggravated [Unknown]
  - Aortic valve incompetence [Unknown]
  - Mitral valve incompetence [Unknown]
  - Tricuspid valve incompetence [Unknown]
  - Pulmonary valve incompetence [Unknown]
  - Left ventricular hypertrophy [Unknown]
  - Aortic valve calcification [Unknown]
  - Haemorrhage [Unknown]
  - Haematuria [Not Recovered/Not Resolved]
  - Dyspnoea [Unknown]
  - Walking aid user [Unknown]
  - Dizziness [Unknown]
  - Fall [Unknown]
  - Dizziness postural [Unknown]
  - Ejection fraction decreased [Unknown]
  - Mitral valve calcification [Unknown]
  - Ventricular dyskinesia [Unknown]
  - Left atrial dilatation [Unknown]

NARRATIVE: CASE EVENT DATE: 20210301
